FAERS Safety Report 13022219 (Version 1)
Quarter: 2016Q4

REPORT INFORMATION
  Report Type: Spontaneous
  Country: US (occurrence: US)
  Receive Date: 20161213
  Receipt Date: 20161213
  Transmission Date: 20170207
  Serious: No
  Sender: FDA-Public Use
  Company Number: US-PFIZER INC-2016569143

PATIENT
  Age: 70 Year
  Sex: Female
  Weight: 78.47 kg

DRUGS (2)
  1. XELJANZ [Suspect]
     Active Substance: TOFACITINIB CITRATE
     Dosage: 22 MG, UNK (2 PILLS)
     Dates: start: 201611, end: 201611
  2. XELJANZ [Suspect]
     Active Substance: TOFACITINIB CITRATE
     Indication: ARTHRITIS
     Dosage: 11 MG, 1X/DAY
     Route: 048
     Dates: start: 20161117, end: 20161119

REACTIONS (8)
  - Drug intolerance [Unknown]
  - Musculoskeletal disorder [Recovering/Resolving]
  - Myalgia [Recovering/Resolving]
  - Diarrhoea [Recovered/Resolved]
  - Dyspnoea [Unknown]
  - Intentional product use issue [Unknown]
  - Nasopharyngitis [Unknown]
  - Drug ineffective [Unknown]

NARRATIVE: CASE EVENT DATE: 201611
